FAERS Safety Report 23914780 (Version 1)
Quarter: 2024Q2

REPORT INFORMATION
  Report Type: Report from Study
  Country: US (occurrence: US)
  Receive Date: 20240529
  Receipt Date: 20240529
  Transmission Date: 20240716
  Serious: No
  Sender: FDA-Public Use
  Company Number: US-BIOVITRUM-2024-US-006739

PATIENT
  Age: 65 Year
  Sex: Male

DRUGS (2)
  1. DOPTELET [Suspect]
     Active Substance: AVATROMBOPAG MALEATE
     Indication: Product used for unknown indication
     Dosage: AS ORDERED
     Route: 048
  2. DOPTELET [Suspect]
     Active Substance: AVATROMBOPAG MALEATE
     Dosage: EVERY OTHER DAY
     Route: 048

REACTIONS (1)
  - Headache [Unknown]
